FAERS Safety Report 17967105 (Version 1)
Quarter: 2020Q3

REPORT INFORMATION
  Report Type: Spontaneous
  Country: JP (occurrence: JP)
  Receive Date: 20200701
  Receipt Date: 20200701
  Transmission Date: 20201103
  Serious: Yes (Death, Hospitalization, Other)
  Sender: FDA-Public Use
  Company Number: JP-SUN PHARMACEUTICAL INDUSTRIES LTD-2020RR-252167

PATIENT
  Age: 34 Year
  Sex: Female

DRUGS (4)
  1. PACLITAXEL. [Suspect]
     Active Substance: PACLITAXEL
     Indication: SMALL INTESTINE ADENOCARCINOMA
     Dosage: 80 MILLIGRAM/SQ. METER, ON DAYS 1, 8 ,15
     Route: 065
  2. TS?1 [Suspect]
     Active Substance: GIMERACIL\OTERACIL\TEGAFUR
     Indication: SMALL INTESTINE ADENOCARCINOMA
     Dosage: 80 MILLIGRAM/SQ. METER, DAILY, ON DAYS 1?14
     Route: 065
  3. OXALIPLATIN. [Suspect]
     Active Substance: OXALIPLATIN
     Indication: SMALL INTESTINE ADENOCARCINOMA
     Dosage: 100 MILLIGRAM/SQ. METER, ON DAY 1, EVERY 3 WEEKS
     Route: 065
  4. RAMUCIRUMAB [Suspect]
     Active Substance: RAMUCIRUMAB
     Indication: SMALL INTESTINE ADENOCARCINOMA
     Dosage: 8 MILLIGRAM/KILOGRAM, ON DAYS 1 AND 15
     Route: 065

REACTIONS (2)
  - Disease progression [Fatal]
  - Ascites [Unknown]
